FAERS Safety Report 4663000-2 (Version None)
Quarter: 2005Q2

REPORT INFORMATION
  Report Type: 
  Country: None (occurrence: None)
  Receive Date: 20050511
  Receipt Date: 20040712
  Transmission Date: 20051028
  Serious: Yes (Other)
  Sender: FDA-Public Use
  Company Number: ZONI001464

PATIENT
  Age: 47 Year
  Sex: Female

DRUGS (3)
  1. ZONEGRAN [Suspect]
     Indication: BIPOLAR DISORDER
     Dosage: 400 MG DAILY, ORAL
     Route: 048
     Dates: start: 20030607
  2. ZONEGRAN [Suspect]
     Indication: BIPOLAR DISORDER
     Dosage: 400 MG DAILY, ORAL
     Route: 048
     Dates: start: 20040601
  3. LEXAPRO SEROQUEL (QUETIAPINE FUMARATE) [Concomitant]

REACTIONS (1)
  - DEAFNESS UNILATERAL [None]
